FAERS Safety Report 10017971 (Version 1)
Quarter: 2014Q1

REPORT INFORMATION
  Report Type: Spontaneous
  Country: BR (occurrence: BR)
  Receive Date: 20140318
  Receipt Date: 20140318
  Transmission Date: 20141002
  Serious: Yes (Other)
  Sender: FDA-Public Use
  Company Number: BR-JNJFOC-20140307522

PATIENT
  Sex: Female

DRUGS (8)
  1. REMICADE [Suspect]
     Indication: RHEUMATOID ARTHRITIS
     Route: 042
     Dates: start: 20140106
  2. REMICADE [Suspect]
     Indication: RHEUMATOID ARTHRITIS
     Route: 042
     Dates: start: 2011
  3. TENOXICAM [Concomitant]
     Indication: RHEUMATOID ARTHRITIS
     Route: 065
  4. CARISOPRODOL [Concomitant]
     Indication: RHEUMATOID ARTHRITIS
     Route: 065
  5. CYCLOBENZAPRINE [Concomitant]
     Indication: ANTIINFLAMMATORY THERAPY
     Route: 065
  6. METHOTREXATE [Concomitant]
     Route: 065
  7. BROMAZEPAM [Concomitant]
     Indication: NERVOUS SYSTEM DISORDER
     Route: 065
  8. TOPIRAMATE [Concomitant]
     Indication: ARTHRALGIA
     Route: 065

REACTIONS (6)
  - Emphysema [Not Recovered/Not Resolved]
  - Cataract [Recovering/Resolving]
  - Cardiac disorder [Not Recovered/Not Resolved]
  - Hypertension [Not Recovered/Not Resolved]
  - Headache [Recovered/Resolved]
  - Dysphonia [Unknown]
